FAERS Safety Report 4870703-3 (Version None)
Quarter: 2006Q1

REPORT INFORMATION
  Report Type: 
  Country: None (occurrence: None)
  Receive Date: 20060103
  Receipt Date: 20051221
  Transmission Date: 20060701
  Serious: Yes (Life-Threatening)
  Sender: FDA-Public Use
  Company Number: JP-JPN-A20053157

PATIENT

DRUGS (2)
  1. PAXIL [Suspect]
     Indication: PAIN
     Dosage: 10MG PER DAY
     Route: 048
  2. DUROTEP [Suspect]
     Route: 065

REACTIONS (1)
  - RESPIRATORY DEPRESSION [None]
